FAERS Safety Report 5026626-2 (Version None)
Quarter: 2006Q2

REPORT INFORMATION
  Report Type: 
  Country: None (occurrence: None)
  Receive Date: 20060615
  Receipt Date: 20060612
  Transmission Date: 20061013
  Serious: Yes (Death)
  Sender: FDA-Public Use
  Company Number: 2006AC01094

PATIENT
  Age: 35 Year
  Sex: Female

DRUGS (6)
  1. SEROQUEL [Suspect]
     Route: 048
  2. CITALOPRAM HYDROBROMIDE [Suspect]
  3. ACETAMINOPHEN [Suspect]
  4. TOPIRAMATE [Suspect]
  5. IBUPROFEN [Suspect]
  6. NAPROXEN [Suspect]

REACTIONS (2)
  - COMPLETED SUICIDE [None]
  - DRUG TOXICITY [None]
